FAERS Safety Report 14417914 (Version 1)
Quarter: 2018Q1

REPORT INFORMATION
  Report Type: Spontaneous
  Country: US (occurrence: US)
  Receive Date: 20180119
  Receipt Date: 20180119
  Transmission Date: 20180509
  Serious: Yes (Life-Threatening, Hospitalization)
  Sender: FDA-Public Use
  Company Number: None

PATIENT
  Age: 21 Year
  Sex: Female
  Weight: 65.8 kg

DRUGS (1)
  1. LAMOTRIGINE. [Suspect]
     Active Substance: LAMOTRIGINE
     Indication: BIPOLAR DISORDER

REACTIONS (13)
  - Lymphadenopathy [None]
  - Rash maculo-papular [None]
  - Therapy change [None]
  - Treatment failure [None]
  - Rash [None]
  - Dysphagia [None]
  - Enterobacter sepsis [None]
  - Oropharyngeal pain [None]
  - Chills [None]
  - Stevens-Johnson syndrome [None]
  - Pyrexia [None]
  - Malaise [None]
  - Toxic epidermal necrolysis [None]

NARRATIVE: CASE EVENT DATE: 20171227
